FAERS Safety Report 16687508 (Version 1)
Quarter: 2019Q4

REPORT INFORMATION
  Report Type: Spontaneous
  Country: US (occurrence: US)
  Receive Date: 20190808
  Receipt Date: 20190808
  Transmission Date: 20200122
  Serious: No
  Sender: FDA-Public Use
  Company Number: None

PATIENT
  Age: 82 Year
  Sex: Female

DRUGS (1)
  1. EYLEA [Suspect]
     Active Substance: AFLIBERCEPT
     Indication: NEOVASCULAR AGE-RELATED MACULAR DEGENERATION
     Dosage: ?          OTHER ROUTE:INTRAVITREAL?
     Dates: start: 20131204, end: 20190723

REACTIONS (4)
  - Vitritis [None]
  - Anterior chamber disorder [None]
  - Inflammation [None]
  - Endophthalmitis [None]

NARRATIVE: CASE EVENT DATE: 20190723
